FAERS Safety Report 13950415 (Version 1)
Quarter: 2017Q3

REPORT INFORMATION
  Report Type: Spontaneous
  Country: US (occurrence: US)
  Receive Date: 20170908
  Receipt Date: 20170908
  Transmission Date: 20171128
  Serious: No
  Sender: FDA-Public Use
  Company Number: US-ROCHE-1131434

PATIENT
  Sex: Female

DRUGS (7)
  1. PREDNISONE. [Concomitant]
     Active Substance: PREDNISONE
     Route: 065
  2. TYLENOL [Concomitant]
     Active Substance: ACETAMINOPHEN
     Route: 065
  3. RITUXAN [Suspect]
     Active Substance: RITUXIMAB
     Indication: CHRONIC LYMPHOCYTIC LEUKAEMIA
     Route: 065
  4. COUMADIN [Concomitant]
     Active Substance: WARFARIN SODIUM
     Route: 065
  5. DOXORUBICIN [Concomitant]
     Active Substance: DOXORUBICIN
     Route: 065
  6. ONCOVIN [Concomitant]
     Active Substance: VINCRISTINE SULFATE
     Route: 065
  7. CYCLOPHOSPHAMIDE. [Concomitant]
     Active Substance: CYCLOPHOSPHAMIDE
     Route: 065

REACTIONS (12)
  - Asthenia [Unknown]
  - Cough [Unknown]
  - Platelet count decreased [Unknown]
  - Sinus congestion [Unknown]
  - White blood cell count decreased [Unknown]
  - Nausea [Unknown]
  - Night sweats [Unknown]
  - Decreased appetite [Unknown]
  - Abdominal distension [Unknown]
  - Pyrexia [Unknown]
  - Tongue neoplasm [Unknown]
  - Oedema peripheral [Unknown]
